FAERS Safety Report 6186858-7 (Version None)
Quarter: 2009Q2

REPORT INFORMATION
  Report Type: 
  Country: None (occurrence: None)
  Receive Date: 20090508
  Receipt Date: 20090508
  Transmission Date: 20091009
  Serious: No
  Sender: FDA-Public Use
  Company Number: None

PATIENT
  Age: 56 Year
  Sex: Female

DRUGS (1)
  1. SITAGLIPIN [Suspect]

REACTIONS (3)
  - DIALYSIS [None]
  - HYPOGLYCAEMIA [None]
  - RENAL FAILURE ACUTE [None]
